FAERS Safety Report 23353555 (Version 2)
Quarter: 2024Q1

REPORT INFORMATION
  Report Type: Report from Study
  Country: US (occurrence: US)
  Receive Date: 20231231
  Receipt Date: 20240118
  Transmission Date: 20240410
  Serious: Yes (Hospitalization, Other)
  Sender: FDA-Public Use
  Company Number: US-ABBVIE-4705990

PATIENT
  Sex: Male
  Weight: 72 kg

DRUGS (15)
  1. RINVOQ [Suspect]
     Active Substance: UPADACITINIB
     Indication: Colitis ulcerative
     Dosage: FIRST ADMINISTRATION DATE: 2023
     Route: 048
     Dates: start: 2023
  2. RINVOQ [Suspect]
     Active Substance: UPADACITINIB
     Indication: Colitis ulcerative
     Dosage: FORM STRENGTH 45 MILLIGRAM?DOSE INCREASED?FIRST ADMINISTRATION DATE: 2023?LAST ADMINISTRATION DAT...
     Route: 048
     Dates: start: 20230311
  3. RINVOQ [Suspect]
     Active Substance: UPADACITINIB
     Indication: Colitis ulcerative
     Dosage: FIRST ADMINISTRATION DATE: 2023?LAST ADMINISTRATION DATE: 2023?DOSE DECREASED
     Route: 048
  4. PREDNISONE [Concomitant]
     Active Substance: PREDNISONE
     Indication: Product used for unknown indication
     Dosage: 10 MILLIGRAM?3 TABS ORAL ONCE A DAY
     Route: 048
  5. PREDNISONE [Concomitant]
     Active Substance: PREDNISONE
     Indication: Product used for unknown indication
     Dosage: 5 MG TABLET 1/2 TABLET ORALLY AS DIRECTED
     Route: 048
  6. PREDNISONE [Concomitant]
     Active Substance: PREDNISONE
     Indication: Product used for unknown indication
     Route: 048
  7. AUGMENTIN [Concomitant]
     Active Substance: AMOXICILLIN\CLAVULANATE POTASSIUM
     Indication: Product used for unknown indication
     Dosage: 875-125 MG TABLET
  8. ENTYVIO [Concomitant]
     Active Substance: VEDOLIZUMAB
     Indication: Product used for unknown indication
     Dosage: INFUSE INTO A VENOUS CATHETER. FORM STRENGTH: 300 MG?300 MG SOLUTION RECONSTITUTED AS DIRECTED IN...
     Route: 042
  9. LEXAPRO [Concomitant]
     Active Substance: ESCITALOPRAM OXALATE
     Indication: Product used for unknown indication
  10. ONDANSETRON HYDROCHLORIDE [Concomitant]
     Active Substance: ONDANSETRON HYDROCHLORIDE
     Indication: Product used for unknown indication
     Dosage: AS NEEDED
  11. UCERIS [Concomitant]
     Active Substance: BUDESONIDE
     Indication: Product used for unknown indication
     Dosage: 2 MG/ACT FOAM?1 APPLICATION RECTAL ONCE A DAY
     Route: 054
  12. SUBOXONE [Concomitant]
     Active Substance: BUPRENORPHINE HYDROCHLORIDE\NALOXONE HYDROCHLORIDE
     Indication: Product used for unknown indication
     Dosage: 2-0.5 MG PLACE 1.5 (ONE AND A HALF) FILM UNDER THE TONGUE ONCE DAILY
     Route: 060
  13. VITAMIN D3 [Concomitant]
     Active Substance: CHOLECALCIFEROL
     Indication: Product used for unknown indication
     Dosage: 12.5 MCG/5 ML (500 UNIT/5 ML) LIQD?TAKE 1 DROP BY MOUTH ONCE DAILY
     Route: 048
  14. ZOFRAN [Concomitant]
     Active Substance: ONDANSETRON HYDROCHLORIDE
     Indication: Product used for unknown indication
     Dosage: AS NEEDED
  15. PREVNAR [Concomitant]
     Active Substance: PNEUMOCOCCAL 7-VALENT CONJUGATE VACCINE (DIPHTHERIA CRM197 PROTEIN)
     Indication: Product used for unknown indication

REACTIONS (22)
  - Appendicitis perforated [Unknown]
  - Colitis ulcerative [Unknown]
  - Oropharyngeal neoplasm benign [Unknown]
  - Spinal pain [Unknown]
  - Productive cough [Unknown]
  - Blood testosterone decreased [Unknown]
  - Abdominal abscess [Unknown]
  - Large intestine perforation [Unknown]
  - Diverticular perforation [Unknown]
  - Sacroiliitis [Unknown]
  - Inflammatory bowel disease [Unknown]
  - COVID-19 [Unknown]
  - Intestinal perforation [Unknown]
  - Rash [Unknown]
  - Localised oedema [Unknown]
  - Skin induration [Unknown]
  - Treatment failure [Unknown]
  - Inflammation [Unknown]
  - Abdominal mass [Unknown]
  - Erythema [Unknown]
  - Fluctuance [Unknown]
  - Pneumoperitoneum [Unknown]

NARRATIVE: CASE EVENT DATE: 20230101
